FAERS Safety Report 19166878 (Version 1)
Quarter: 2021Q2

REPORT INFORMATION
  Report Type: Report from Study
  Country: None (occurrence: CO)
  Receive Date: 20210422
  Receipt Date: 20210422
  Transmission Date: 20210717
  Serious: Yes (Other)
  Sender: FDA-Public Use
  Company Number: CO-ABBVIE-21K-036-3870961-00

PATIENT
  Age: 48 Year
  Sex: Female
  Weight: 68 kg

DRUGS (1)
  1. HUMIRA [Suspect]
     Active Substance: ADALIMUMAB
     Indication: UVEITIS
     Route: 058
     Dates: start: 20191030, end: 20210330

REACTIONS (14)
  - Limb discomfort [Recovering/Resolving]
  - Urinary tract infection [Recovering/Resolving]
  - Vaginal infection [Recovering/Resolving]
  - Immune system disorder [Recovering/Resolving]
  - Ocular discomfort [Recovering/Resolving]
  - Fibromyalgia [Recovering/Resolving]
  - Arthralgia [Recovering/Resolving]
  - Insomnia [Recovering/Resolving]
  - Vision blurred [Recovering/Resolving]
  - Mass [Recovering/Resolving]
  - Dizziness [Recovering/Resolving]
  - Asthenia [Recovered/Resolved]
  - Pain [Recovering/Resolving]
  - Gait disturbance [Recovering/Resolving]

NARRATIVE: CASE EVENT DATE: 2019
